FAERS Safety Report 5907019-X (Version None)
Quarter: 2008Q4

REPORT INFORMATION
  Report Type: 
  Country: None (occurrence: None)
  Receive Date: 20081003
  Receipt Date: 20080925
  Transmission Date: 20090506
  Serious: Yes (Other)
  Sender: FDA-Public Use
  Company Number: US-WYE-H06149708

PATIENT
  Age: 42 Year
  Sex: Female

DRUGS (3)
  1. ROBITUSSIN COUGH AND COLD CF [Suspect]
     Indication: COUGH
     Dosage: 2 TEASPOONS AS NEEDED
     Route: 048
     Dates: end: 20080924
  2. ROBITUSSIN COUGH AND COLD CF [Suspect]
     Indication: NASOPHARYNGITIS
  3. MULTI-VITAMINS [Concomitant]
     Indication: DRUG USE FOR UNKNOWN INDICATION
     Dosage: UNKNOWN
     Route: 065

REACTIONS (4)
  - HYPERSENSITIVITY [None]
  - NAUSEA [None]
  - PHARYNGEAL OEDEMA [None]
  - SWELLING FACE [None]
